FAERS Safety Report 8171880-1 (Version None)
Quarter: 2012Q1

REPORT INFORMATION
  Report Type: 
  Country: None (occurrence: None)
  Receive Date: 20120113
  Receipt Date: 20111014
  Transmission Date: 20120608
  Serious: Yes (Other)
  Sender: FDA-Public Use
  Company Number: 2011S1000083

PATIENT
  Age: 53 Year
  Sex: Male
  Weight: 83.9154 kg

DRUGS (10)
  1. ZYRTEC [Concomitant]
  2. AMBIEN [Concomitant]
  3. HUMIRA [Concomitant]
  4. ALLOPURINOL [Concomitant]
  5. SOLU-MEDROL [Concomitant]
  6. KRYSTEXXA [Suspect]
     Indication: GOUTY TOPHUS
     Dosage: X1;IV ; 8 MG;X1;IV ; 8 MG;X1;IV
     Route: 042
     Dates: start: 20111013, end: 20111013
  7. KRYSTEXXA [Suspect]
     Indication: GOUTY TOPHUS
     Dosage: X1;IV ; 8 MG;X1;IV ; 8 MG;X1;IV
     Route: 042
     Dates: start: 20110926, end: 20110926
  8. KRYSTEXXA [Suspect]
     Indication: GOUTY TOPHUS
     Dosage: X1;IV ; 8 MG;X1;IV ; 8 MG;X1;IV
     Route: 042
     Dates: start: 20110912, end: 20110912
  9. NAPROXEN [Concomitant]
  10. TYLENOL (CAPLET) [Concomitant]

REACTIONS (2)
  - HEADACHE [None]
  - INFUSION RELATED REACTION [None]
